FAERS Safety Report 19802019 (Version 3)
Quarter: 2023Q1

REPORT INFORMATION
  Report Type: Report from Study
  Country: JP (occurrence: JP)
  Receive Date: 20210908
  Receipt Date: 20230124
  Transmission Date: 20230417
  Serious: Yes (Death, Hospitalization, Other)
  Sender: FDA-Public Use
  Company Number: JP-KYOWAKIRIN-2021AKK014758

PATIENT
  Age: 82 Year
  Sex: Male

DRUGS (13)
  1. ROMIPLOSTIM [Suspect]
     Active Substance: ROMIPLOSTIM
     Indication: Aplastic anaemia
     Dosage: 5 MICROGRAM/KILOGRAM
     Route: 058
     Dates: start: 20190930, end: 20190930
  2. CEFTRIAXONE SODIUM [Concomitant]
     Active Substance: CEFTRIAXONE SODIUM
     Indication: Enterocolitis
     Dosage: UNK
     Route: 065
  3. VANCOMYCIN ABBOTT [Concomitant]
     Indication: Enterocolitis
     Dosage: UNK
     Route: 065
  4. MEROPENEM [Concomitant]
     Active Substance: MEROPENEM
     Indication: Enterocolitis
     Dosage: UNK
     Route: 065
  5. LENOGRASTIM [Concomitant]
     Active Substance: LENOGRASTIM
     Indication: Aplastic anaemia
     Dosage: UNK
     Route: 065
  6. JADENU [Concomitant]
     Active Substance: DEFERASIROX
     Indication: Iron overload
     Dosage: UNK
     Route: 048
  7. MIYA-BM [Concomitant]
     Active Substance: CLOSTRIDIUM BUTYRICUM SPORES STRAIN M-55
     Indication: Enterocolitis
     Dosage: UNK
     Route: 048
  8. POLARAMINE [Concomitant]
     Active Substance: DEXCHLORPHENIRAMINE MALEATE
     Indication: Product used for unknown indication
     Dosage: UNK
     Route: 048
  9. VONOPRAZAN FUMARATE [Concomitant]
     Active Substance: VONOPRAZAN FUMARATE
     Indication: Product used for unknown indication
     Dosage: UNK
     Route: 048
  10. ACETAMINOPHEN [Concomitant]
     Active Substance: ACETAMINOPHEN
     Indication: Enterocolitis
     Dosage: UNK
     Route: 042
  11. POTASSIUM ASPARTATE [Concomitant]
     Active Substance: POTASSIUM ASPARTATE
     Indication: Hypokalaemia
     Dosage: UNK
     Route: 065
  12. AMLODIPINE [Concomitant]
     Active Substance: AMLODIPINE BESYLATE
     Indication: Hypertension
     Dosage: UNK
     Route: 048
  13. AMLODIPINE [Concomitant]
     Active Substance: AMLODIPINE BESYLATE
     Dosage: UNK
     Route: 048

REACTIONS (3)
  - Enterocolitis [Fatal]
  - Aplastic anaemia [Fatal]
  - Hypokalaemia [Not Recovered/Not Resolved]

NARRATIVE: CASE EVENT DATE: 20191001
